FAERS Safety Report 13589934 (Version 5)
Quarter: 2017Q3

REPORT INFORMATION
  Report Type: Report from Study
  Country: GR (occurrence: GR)
  Receive Date: 20170529
  Receipt Date: 20170705
  Transmission Date: 20171127
  Serious: Yes (Hospitalization)
  Sender: FDA-Public Use
  Company Number: GR-ROCHE-1920385

PATIENT
  Age: 72 Year
  Sex: Male

DRUGS (3)
  1. PIRFENIDONE. [Suspect]
     Active Substance: PIRFENIDONE
     Dosage: DATE OF LAST DOSE PRIOR TO HOSPITALISATION: 10/APR/2017
     Route: 048
  2. PIRFENIDONE. [Suspect]
     Active Substance: PIRFENIDONE
     Indication: IDIOPATHIC PULMONARY FIBROSIS
     Route: 048
     Dates: start: 20170316
  3. PIRFENIDONE. [Suspect]
     Active Substance: PIRFENIDONE
     Route: 048

REACTIONS (1)
  - Idiopathic pulmonary fibrosis [Recovered/Resolved]

NARRATIVE: CASE EVENT DATE: 20170316
